FAERS Safety Report 7101698-X (Version None)
Quarter: 2010Q4

REPORT INFORMATION
  Report Type: 
  Country: None (occurrence: None)
  Receive Date: 20101115
  Receipt Date: 20101029
  Transmission Date: 20110411
  Serious: Yes (Hospitalization, Other)
  Sender: FDA-Public Use
  Company Number: US-BAYER-201020545NA

PATIENT
  Age: 20 Year
  Sex: Female
  Weight: 59 kg

DRUGS (4)
  1. YASMIN [Suspect]
     Indication: CONTRACEPTION
     Dates: start: 20080228, end: 20090401
  2. FOLIC ACID [Concomitant]
  3. YAZ [Concomitant]
  4. CALTRATE [Concomitant]

REACTIONS (9)
  - ANXIETY DISORDER [None]
  - APHASIA [None]
  - EYE ROLLING [None]
  - GRAND MAL CONVULSION [None]
  - HEADACHE [None]
  - LOSS OF CONSCIOUSNESS [None]
  - RASH [None]
  - SYNCOPE [None]
  - TREMOR [None]
